FAERS Safety Report 17114699 (Version 1)
Quarter: 2019Q4

REPORT INFORMATION
  Report Type: Spontaneous
  Country: US (occurrence: US)
  Receive Date: 20191112
  Receipt Date: 20191112
  Transmission Date: 20200122
  Serious: Yes (Hospitalization)
  Sender: FDA-Public Use
  Company Number: None

PATIENT
  Sex: Female

DRUGS (2)
  1. COSENTYX [Suspect]
     Active Substance: SECUKINUMAB
     Indication: RHEUMATOID ARTHRITIS
     Dosage: ?     300 MG ( 2 SYRINGES)      OTHER FREQUENCY:EVERY 28 DAYS;?
     Route: 058
     Dates: start: 20190221, end: 20191111
  2. LINSINOPRIL [Concomitant]
     Active Substance: LISINOPRIL

REACTIONS (4)
  - Product dose omission [None]
  - Elbow deformity [None]
  - Bone deformity [None]
  - Vein disorder [None]
